FAERS Safety Report 21512064 (Version 2)
Quarter: 2022Q4

REPORT INFORMATION
  Report Type: Spontaneous
  Country: GB (occurrence: GB)
  Receive Date: 20221027
  Receipt Date: 20221130
  Transmission Date: 20230113
  Serious: Yes (Other)
  Sender: FDA-Public Use
  Company Number: GB-SAMSUNG BIOEPIS-SB-2022-26997

PATIENT
  Sex: Male

DRUGS (1)
  1. IMRALDI [Suspect]
     Active Substance: ADALIMUMAB
     Indication: Spondylitis
     Dosage: UNKNOWN
     Route: 065

REACTIONS (3)
  - Therapeutic product effect decreased [Unknown]
  - Spondylitis [Unknown]
  - Product use in unapproved indication [Unknown]
